FAERS Safety Report 20892327 (Version 4)
Quarter: 2022Q3

REPORT INFORMATION
  Report Type: Report from Study
  Country: US (occurrence: US)
  Receive Date: 20220530
  Receipt Date: 20220913
  Transmission Date: 20221026
  Serious: Yes (Hospitalization, Other)
  Sender: FDA-Public Use
  Company Number: US-BRISTOL-MYERS SQUIBB COMPANY-2022-018241

PATIENT
  Age: 69 Year
  Sex: Female
  Weight: 63.96 kg

DRUGS (12)
  1. REVLIMID [Suspect]
     Active Substance: LENALIDOMIDE
     Indication: Plasma cell myeloma
     Dosage: 21 OUT OF 28 DAYS
     Route: 048
     Dates: start: 20170517
  2. REVLIMID [Suspect]
     Active Substance: LENALIDOMIDE
     Route: 048
     Dates: start: 20170517
  3. REVLIMID [Suspect]
     Active Substance: LENALIDOMIDE
     Dosage: FOR 21 DAYS ,OFF FOR 7 DAYS (28 DAY CYCLE)?EXPIRATION DATE: 30-JUN-2024
     Route: 048
     Dates: start: 20170517
  4. ZOLOFT [Concomitant]
     Active Substance: SERTRALINE HYDROCHLORIDE
     Indication: Product used for unknown indication
     Route: 065
  5. ASPIRIN [Concomitant]
     Active Substance: ASPIRIN
     Indication: Product used for unknown indication
     Route: 065
  6. BENADRYL [Concomitant]
     Active Substance: DIPHENHYDRAMINE HYDROCHLORIDE
     Indication: Product used for unknown indication
     Route: 065
  7. MELATONIN [Concomitant]
     Active Substance: MELATONIN
     Indication: Product used for unknown indication
     Route: 065
  8. ACETAMINOPHEN [Concomitant]
     Active Substance: ACETAMINOPHEN
     Indication: Product used for unknown indication
     Route: 065
  9. PRILOSEC [Concomitant]
     Active Substance: OMEPRAZOLE MAGNESIUM
     Indication: Product used for unknown indication
     Route: 065
  10. CHOLESTYRAMINE [Concomitant]
     Active Substance: CHOLESTYRAMINE
     Indication: Product used for unknown indication
     Route: 065
  11. ZYRTEC-D [Concomitant]
     Active Substance: CETIRIZINE HYDROCHLORIDE\PSEUDOEPHEDRINE HYDROCHLORIDE
     Indication: Product used for unknown indication
     Route: 065
  12. MULTIVITAMIN IRON FLUORIDE [Concomitant]
     Indication: Product used for unknown indication
     Route: 065

REACTIONS (10)
  - Urinary tract infection [Unknown]
  - Nausea [Unknown]
  - Diarrhoea [Unknown]
  - Feeling hot [Unknown]
  - Hypertension [Unknown]
  - Gout [Unknown]
  - Blood uric acid increased [Unknown]
  - Blood pressure increased [Unknown]
  - Cataract [Unknown]
  - Renal disorder [Unknown]

NARRATIVE: CASE EVENT DATE: 20220416
